FAERS Safety Report 9499695 (Version 1)
Quarter: 2013Q3

REPORT INFORMATION
  Report Type: Spontaneous
  Country: US (occurrence: US)
  Receive Date: 20130905
  Receipt Date: 20130905
  Transmission Date: 20140515
  Serious: No
  Sender: FDA-Public Use
  Company Number: US-BAYER-2013-107086

PATIENT
  Sex: Female
  Weight: 45 kg

DRUGS (17)
  1. BETASERON [Suspect]
     Indication: MULTIPLE SCLEROSIS
     Dosage: UNK
     Route: 058
     Dates: start: 2009, end: 2010
  2. ENABLEX [Concomitant]
  3. SOLU MEDROL [Concomitant]
  4. COD LIVER OIL [Concomitant]
  5. NORTRIPTYLIN [Concomitant]
  6. NEURONTIN [Concomitant]
  7. VITAMIN D [Concomitant]
  8. ZOLOFT [Concomitant]
  9. BACLOFEN [Concomitant]
  10. VITAMIN B COMPLEX [Concomitant]
  11. XANAX [Concomitant]
  12. VANTIN [Concomitant]
  13. ADDERALL [Concomitant]
  14. OMEGA 3 [Concomitant]
  15. OXYCODONE [Concomitant]
  16. MAXALT [Concomitant]
  17. SALMON [Concomitant]

REACTIONS (2)
  - Influenza like illness [Unknown]
  - Depression [Unknown]
